FAERS Safety Report 24553342 (Version 1)
Quarter: 2024Q4

REPORT INFORMATION
  Report Type: Spontaneous
  Country: CN (occurrence: CN)
  Receive Date: 20241028
  Receipt Date: 20241028
  Transmission Date: 20250115
  Serious: Yes (Hospitalization, Disabling, Other)
  Sender: JUBILANT
  Company Number: None

PATIENT
  Age: 71 Year
  Sex: Female

DRUGS (18)
  1. LEVOFLOXACIN [Suspect]
     Active Substance: LEVOFLOXACIN
     Indication: Cystitis
     Dosage: 0.5 G
     Route: 048
     Dates: start: 20211202
  2. LEVOFLOXACIN [Suspect]
     Active Substance: LEVOFLOXACIN
     Indication: Urinary tract infection
     Dosage: 0.5 G
     Route: 065
     Dates: start: 20220130, end: 202202
  3. SOLIFENACIN [Concomitant]
     Active Substance: SOLIFENACIN
     Indication: Cystitis
     Dosage: 5 MG,  UNK
     Route: 048
     Dates: start: 20220130
  4. INSULIN NOS [Concomitant]
     Active Substance: INSULIN NOS
     Indication: Type 2 diabetes mellitus
     Dosage: LONG-TERM
  5. ACARBOSE [Concomitant]
     Active Substance: ACARBOSE
     Indication: Type 2 diabetes mellitus
     Dosage: UNK
  6. MOMETASONE FUROATE [Concomitant]
     Active Substance: MOMETASONE FUROATE
     Indication: Antiallergic therapy
     Dosage: UNK
     Dates: start: 20220130
  7. RANITIDINE [Concomitant]
     Active Substance: RANITIDINE
     Indication: Antiallergic therapy
     Dosage: UNK
     Dates: start: 20220130
  8. TRIAMCINOLONE ACETONIDE [Concomitant]
     Active Substance: TRIAMCINOLONE ACETONIDE
     Indication: Antiallergic therapy
     Dosage: UNK
     Dates: start: 20220130
  9. METHYLPREDNISOLONE [Concomitant]
     Active Substance: METHYLPREDNISOLONE
     Indication: Antiallergic therapy
     Dosage: 80 MG, ONCE PER DAY
     Route: 042
     Dates: start: 20220201, end: 20220208
  10. CLINDAMYCIN PHOSPHATE [Concomitant]
     Active Substance: CLINDAMYCIN PHOSPHATE
     Indication: Prophylaxis
     Dosage: UNK
     Dates: start: 20220201
  11. DESLORATADINE [Concomitant]
     Active Substance: DESLORATADINE
     Indication: Hypersensitivity
     Dosage: 8.8 MG, DESLORATADINE TABLETS
     Dates: start: 20220201
  12. EBASTINE [Concomitant]
     Active Substance: EBASTINE
     Indication: Hypersensitivity
     Dosage: 10 MG, EBASTINE TABLETS
     Dates: start: 20220201
  13. MEROPENEM [Concomitant]
     Active Substance: MEROPENEM
     Indication: Antibiotic therapy
     Dosage: 1 G, 3 TIMES PER DAY, MEROPENEM 1 G PUMP THREE TIMES A DAY
     Dates: start: 202202, end: 202202
  14. TEICOPLANIN [Concomitant]
     Active Substance: TEICOPLANIN
     Indication: Antibiotic therapy
     Dosage: 0.4 G, 2 TIMES PER DAY, TEICOPLANIN 0.4 G PUMP TWICE DAILY FOR 5 DOSES
     Dates: start: 202202
  15. TEICOPLANIN [Concomitant]
     Active Substance: TEICOPLANIN
     Dosage: 0.4 G, ONCE PER DAY, A MAINTENANCE DOSE 0.4 G ONCE DAILY
     Dates: start: 202202
  16. CASPOFUNGIN [Concomitant]
     Active Substance: CASPOFUNGIN
     Indication: Antibiotic therapy
     Dosage: 50 MG
     Dates: start: 202202
  17. CASPOFUNGIN [Concomitant]
     Active Substance: CASPOFUNGIN
     Dosage: 0.4 G, ONCE PER DAY, A MAINTENANCE DOSE , PUMP
     Dates: start: 202202
  18. LORATADINE [Concomitant]
     Active Substance: LORATADINE
     Indication: Hypersensitivity
     Dosage: 8.8 MG
     Route: 048
     Dates: start: 202202, end: 202203

REACTIONS (2)
  - Toxic epidermal necrolysis [Recovered/Resolved]
  - Peripheral artery occlusion [Unknown]

NARRATIVE: CASE EVENT DATE: 20211202
